FAERS Safety Report 11370766 (Version 1)
Quarter: 2015Q3

REPORT INFORMATION
  Report Type: Spontaneous
  Country: FR (occurrence: FR)
  Receive Date: 20150812
  Receipt Date: 20150812
  Transmission Date: 20151125
  Serious: Yes (Hospitalization)
  Sender: FDA-Public Use
  Company Number: FR-EISAI MEDICAL RESEARCH-EC-2015-009440

PATIENT
  Age: 44 Year
  Sex: Male
  Weight: 59 kg

DRUGS (5)
  1. PARIET [Suspect]
     Active Substance: RABEPRAZOLE SODIUM
     Dosage: UNKNOWN
     Route: 048
     Dates: start: 20150721, end: 20150726
  2. TAFINLAR [Concomitant]
     Active Substance: DABRAFENIB MESYLATE
     Indication: PRODUCT USED FOR UNKNOWN INDICATION
     Route: 065
     Dates: start: 20150430, end: 20150511
  3. PARIET [Suspect]
     Active Substance: RABEPRAZOLE SODIUM
     Indication: PRODUCT USED FOR UNKNOWN INDICATION
     Dosage: UNKNOWN
     Route: 048
     Dates: start: 201505, end: 2015
  4. INEXIUM [Suspect]
     Active Substance: ESOMEPRAZOLE
     Indication: PRODUCT USED FOR UNKNOWN INDICATION
     Dosage: UNKNOWN
     Route: 048
     Dates: start: 201504, end: 20150516
  5. INEXIUM [Suspect]
     Active Substance: ESOMEPRAZOLE
     Dosage: UNKNOWN
     Route: 048
     Dates: start: 20150705, end: 20150720

REACTIONS (2)
  - Hepatocellular injury [Recovering/Resolving]
  - Coagulation factor decreased [Recovering/Resolving]

NARRATIVE: CASE EVENT DATE: 20150720
